FAERS Safety Report 6490448-6 (Version None)
Quarter: 2009Q4

REPORT INFORMATION
  Report Type: 
  Country: None (occurrence: None)
  Receive Date: 20091211
  Receipt Date: 20091203
  Transmission Date: 20100525
  Serious: Yes (Other)
  Sender: FDA-Public Use
  Company Number: DE-AMGEN-UK367915

PATIENT
  Sex: Male

DRUGS (14)
  1. ARANESP [Suspect]
     Indication: PRE-EXISTING DISEASE
     Route: 058
     Dates: start: 20090601, end: 20090601
  2. APROVEL [Concomitant]
  3. DILATREND [Concomitant]
  4. CARDURA [Concomitant]
  5. LERCANIDIPINE [Concomitant]
  6. SIMVASTATIN [Concomitant]
  7. EZETROL [Concomitant]
  8. PLETAL [Concomitant]
  9. ALLOPURINOL [Concomitant]
  10. L-THYROXIN [Concomitant]
  11. LYRICA [Concomitant]
  12. MAGNESIUM VERLA DRAGEES [Concomitant]
  13. ISCOVER [Concomitant]
  14. IDEOS [Concomitant]

REACTIONS (3)
  - ERYTHEMA [None]
  - RASH [None]
  - RASH MACULO-PAPULAR [None]
